FAERS Safety Report 17080724 (Version 1)
Quarter: 2019Q4

REPORT INFORMATION
  Report Type: Spontaneous
  Country: DE (occurrence: DE)
  Receive Date: 20191127
  Receipt Date: 20191127
  Transmission Date: 20200122
  Serious: Yes (Other)
  Sender: FDA-Public Use
  Company Number: DE-ROCHE-2484234

PATIENT
  Age: 1 Year
  Sex: Female

DRUGS (1)
  1. NUTROPIN [Suspect]
     Active Substance: SOMATROPIN
     Indication: PRADER-WILLI SYNDROME
     Dosage: (5 MG/1.5 ML)
     Route: 058
     Dates: start: 20161115

REACTIONS (5)
  - Off label use [Unknown]
  - Hypopnoea [Recovered/Resolved]
  - Sleep apnoea syndrome [Recovered/Resolved]
  - Intentional product use issue [Unknown]
  - Neonatal hypoxia [Recovered/Resolved]
